FAERS Safety Report 6109212-2 (Version None)
Quarter: 2009Q1

REPORT INFORMATION
  Report Type: 
  Country: None (occurrence: None)
  Receive Date: 20090310
  Receipt Date: 20090303
  Transmission Date: 20090719
  Serious: Yes (Hospitalization)
  Sender: FDA-Public Use
  Company Number: PHHY2009BD07840

PATIENT
  Age: 20 Year
  Sex: Female
  Weight: 55 kg

DRUGS (5)
  1. TEGRETOL [Suspect]
     Indication: EPILEPSY
     Dosage: 1 TAB DAILY
     Route: 048
     Dates: start: 20080810
  2. FLUPENTIXOL [Concomitant]
  3. MELLITRACIN [Concomitant]
  4. ESOMEPRAZOLE [Concomitant]
  5. MULTI-VITAMIN [Concomitant]

REACTIONS (5)
  - BURNING SENSATION [None]
  - ERYTHEMA [None]
  - MOUTH ULCERATION [None]
  - PRURITUS GENERALISED [None]
  - TONGUE ULCERATION [None]
